FAERS Safety Report 4990069-8 (Version None)
Quarter: 2006Q2

REPORT INFORMATION
  Report Type: 
  Country: None (occurrence: None)
  Receive Date: 20060501
  Receipt Date: 20060501
  Transmission Date: 20061013
  Serious: Yes (Other)
  Sender: FDA-Public Use
  Company Number: None

PATIENT
  Sex: Female
  Weight: 57.6068 kg

DRUGS (2)
  1. LEXAPRO [Suspect]
     Indication: ANXIETY
     Dosage: 5-10 MGS SID PO
     Route: 048
     Dates: start: 20051210, end: 20060420
  2. LEXAPRO [Suspect]
     Indication: DEPRESSION
     Dosage: 5-10 MGS SID PO
     Route: 048
     Dates: start: 20051210, end: 20060420

REACTIONS (10)
  - ANXIETY [None]
  - BRUXISM [None]
  - DEPRESSION [None]
  - FEELING ABNORMAL [None]
  - HYPERHIDROSIS [None]
  - HYPERSOMNIA [None]
  - PHARMACEUTICAL PRODUCT COMPLAINT [None]
  - THIRST [None]
  - TINNITUS [None]
  - TREATMENT NONCOMPLIANCE [None]
